FAERS Safety Report 15682059 (Version 3)
Quarter: 2019Q4

REPORT INFORMATION
  Report Type: Spontaneous
  Country: CA (occurrence: CA)
  Receive Date: 20181203
  Receipt Date: 20191023
  Transmission Date: 20200122
  Serious: Yes (Hospitalization, Other)
  Sender: FDA-Public Use
  Company Number: CA-PFIZER INC-2017196817

PATIENT
  Age: 63 Year
  Sex: Female

DRUGS (5)
  1. METHOTREXATE. [Concomitant]
     Active Substance: METHOTREXATE
     Dosage: UNK
     Route: 065
     Dates: start: 2006, end: 201901
  2. METHOTREXATE. [Concomitant]
     Active Substance: METHOTREXATE
     Indication: RHEUMATOID ARTHRITIS
     Dosage: UNK
     Dates: start: 2006, end: 201812
  3. XELJANZ [Suspect]
     Active Substance: TOFACITINIB CITRATE
     Indication: RHEUMATOID ARTHRITIS
     Dosage: 5 MG, TWICE DAILY
     Route: 048
     Dates: start: 20170331, end: 2018
  4. PREDNISONE. [Concomitant]
     Active Substance: PREDNISONE
     Dosage: UNK
     Dates: start: 201801, end: 201806
  5. XELJANZ [Suspect]
     Active Substance: TOFACITINIB CITRATE
     Dosage: 5 MG, TWICE DAILY
     Route: 048
     Dates: start: 2018, end: 2018

REACTIONS (12)
  - Cystitis [Unknown]
  - Peripheral swelling [Recovering/Resolving]
  - Nephrolithiasis [Unknown]
  - Kidney infection [Unknown]
  - Fall [Unknown]
  - Contusion [Unknown]
  - Pneumonia [Unknown]
  - Asthenia [Not Recovered/Not Resolved]
  - Sensitivity to weather change [Unknown]
  - Headache [Not Recovered/Not Resolved]
  - Drug ineffective [Recovered/Resolved]
  - Cardiac disorder [Not Recovered/Not Resolved]

NARRATIVE: CASE EVENT DATE: 2017
